FAERS Safety Report 23097919 (Version 1)
Quarter: 2023Q4

REPORT INFORMATION
  Report Type: Spontaneous
  Country: US (occurrence: US)
  Receive Date: 20231023
  Receipt Date: 20231023
  Transmission Date: 20240110
  Serious: Yes (Death, Other)
  Sender: FDA-Public Use
  Company Number: US-ALEMBIC PHARMACUETICALS LIMITED-2023SCAL000911

PATIENT

DRUGS (1)
  1. DOCETAXEL [Suspect]
     Active Substance: DOCETAXEL
     Indication: Lung cancer metastatic
     Dosage: UNK
     Route: 065

REACTIONS (12)
  - Hypereosinophilic syndrome [Fatal]
  - Cardiac arrest [Fatal]
  - Angina pectoris [Fatal]
  - Electrocardiogram ST segment elevation [Fatal]
  - Cerebral infarction [Fatal]
  - Cerebral haemorrhage [Fatal]
  - Encephalopathy [Fatal]
  - Eosinophil count increased [Fatal]
  - Hepatomegaly [Fatal]
  - Dyspnoea [Fatal]
  - Myocardial necrosis marker increased [Fatal]
  - Leukostasis syndrome [Fatal]
